FAERS Safety Report 10779789 (Version 1)
Quarter: 2015Q1

REPORT INFORMATION
  Report Type: Spontaneous
  Country: US (occurrence: US)
  Receive Date: 20150210
  Receipt Date: 20150210
  Transmission Date: 20150721
  Serious: No
  Sender: FDA-Public Use
  Company Number: US-GLAXOSMITHKLINE-A0835418A

PATIENT

DRUGS (3)
  1. TREXIMET [Interacting]
     Active Substance: NAPROXEN SODIUM\SUMATRIPTAN SUCCINATE
     Dates: start: 20091215, end: 20091215
  2. TREXIMET [Suspect]
     Active Substance: NAPROXEN SODIUM\SUMATRIPTAN SUCCINATE
     Indication: MIGRAINE
     Dosage: 85/500 MG. SINGLE DOSE.
     Route: 048
     Dates: start: 20091215, end: 20091215
  3. LEXAPRO [Interacting]
     Active Substance: ESCITALOPRAM OXALATE
     Indication: PRODUCT USED FOR UNKNOWN INDICATION
     Route: 065

REACTIONS (7)
  - Fatigue [Recovered/Resolved]
  - Drug interaction [Recovered/Resolved]
  - Feeling abnormal [Recovered/Resolved]
  - Vomiting [Recovered/Resolved]
  - Nausea [Recovered/Resolved]
  - Chest discomfort [Recovered/Resolved]
  - Chest pain [Recovered/Resolved]

NARRATIVE: CASE EVENT DATE: 20091215
